FAERS Safety Report 7418139 (Version 3)
Quarter: 2014Q3

REPORT INFORMATION
  Report Type: Spontaneous
  Country: DE (occurrence: DE)
  Receive Date: 20100614
  Receipt Date: 20140729
  Transmission Date: 20150326
  Serious: Yes (Hospitalization)
  Sender: FDA-Public Use
  Company Number: DE-RANBAXY-2010RR-34461

PATIENT
  Age: 81 Year
  Sex: Male
  Weight: 98 kg

DRUGS (23)
  1. RAMIPRIL. [Concomitant]
     Active Substance: RAMIPRIL
     Dosage: UNK
     Dates: start: 20090316
  2. TOREM/GFR [Concomitant]
     Dosage: UNK
     Route: 065
     Dates: start: 20090316
  3. CLINDAMYCIN [Suspect]
     Active Substance: CLINDAMYCIN\CLINDAMYCIN PHOSPHATE
     Indication: SPONDYLITIS
     Dosage: 600 MG, TID
     Route: 048
     Dates: start: 20090204, end: 20090317
  4. ASS 100 [Concomitant]
     Active Substance: ASPIRIN
     Dosage: 500
     Route: 065
  5. VANCOMYCIN [Suspect]
     Active Substance: VANCOMYCIN
     Indication: ABSCESS
     Dosage: 1000 MG, BID
     Route: 042
     Dates: start: 20090319, end: 20090330
  6. CLINDAMYCIN [Suspect]
     Active Substance: CLINDAMYCIN\CLINDAMYCIN PHOSPHATE
     Dosage: 1 DF, BID
     Route: 048
     Dates: start: 20090320, end: 20090320
  7. PERENTEROL [Concomitant]
     Active Substance: SACCHAROMYCES CEREVISIAE
     Indication: DYSBACTERIOSIS
     Dosage: 50 MG, BID
     Route: 048
     Dates: start: 200902, end: 20090408
  8. ALDACTONE [Concomitant]
     Active Substance: SPIRONOLACTONE
     Indication: ASCITES
     Dosage: 100 MG, QD
     Route: 048
     Dates: start: 200807, end: 20090316
  9. BISOPROLOL [Concomitant]
     Active Substance: BISOPROLOL
     Indication: HYPERTENSION
     Dosage: 2.5 MG, QD
     Route: 048
     Dates: start: 200812, end: 20090316
  10. ASS 100 [Concomitant]
     Active Substance: ASPIRIN
     Indication: CARDIOVASCULAR EVENT PROPHYLAXIS
     Dosage: 100 MG, QD
     Route: 048
     Dates: start: 1990, end: 20090318
  11. ASS 100 [Concomitant]
     Active Substance: ASPIRIN
     Dosage: 100 UNK, UNK
     Route: 065
     Dates: start: 20090320
  12. TAMSULOSIN [Concomitant]
     Active Substance: TAMSULOSIN
     Indication: BENIGN PROSTATIC HYPERPLASIA
     Dosage: 0.4 MG, QD
     Route: 048
     Dates: start: 200807
  13. NOVALGIN/SCH [Concomitant]
     Indication: PAIN
     Dosage: 500 MG, QD
     Route: 048
     Dates: start: 200902
  14. DUROGESIC [Concomitant]
     Active Substance: FENTANYL
     Indication: PRODUCT USED FOR UNKNOWN INDICATION
     Dosage: 12.5
     Route: 065
  15. ALDACTONE [Concomitant]
     Active Substance: SPIRONOLACTONE
     Dosage: UNK
  16. COLDASTOP [Concomitant]
     Indication: EPISTAXIS
     Dosage: 1 DF, TID
     Route: 045
     Dates: start: 200902
  17. CLINDAMYCIN [Suspect]
     Active Substance: CLINDAMYCIN\CLINDAMYCIN PHOSPHATE
     Indication: PSOAS ABSCESS
     Dosage: 1 DF, QD
     Route: 048
     Dates: start: 20090319, end: 20090319
  18. RAMIPRIL. [Concomitant]
     Active Substance: RAMIPRIL
     Indication: HYPERTENSION
     Dosage: 2.5 MG, BID
     Route: 048
     Dates: start: 200812, end: 20090315
  19. KATALODON [Concomitant]
     Indication: PRODUCT USED FOR UNKNOWN INDICATION
     Dosage: 100
     Route: 065
  20. VANCOMYCIN [Suspect]
     Active Substance: VANCOMYCIN
     Indication: SPONDYLITIS
  21. TOREM/GFR [Concomitant]
     Indication: HYPERTENSION
     Dosage: UNK
     Route: 048
     Dates: start: 200807
  22. CIPRALEX/DEN [Concomitant]
     Indication: RESTLESSNESS
     Dosage: 20 MG, QD
     Route: 048
     Dates: start: 200902
  23. CLONT 500 [Concomitant]
     Indication: PRODUCT USED FOR UNKNOWN INDICATION
     Dosage: 500
     Route: 065
     Dates: start: 20090318, end: 20090325

REACTIONS (2)
  - Renal failure acute [Recovered/Resolved]
  - Pseudomembranous colitis [Recovered/Resolved]

NARRATIVE: CASE EVENT DATE: 20090220
